FAERS Safety Report 23100766 (Version 1)
Quarter: 2023Q4

REPORT INFORMATION
  Report Type: Spontaneous
  Country: US (occurrence: None)
  Receive Date: 20231020
  Receipt Date: 20231020
  Transmission Date: 20240109
  Serious: No
  Sender: FDA-Public Use
  Company Number: None

PATIENT
  Age: 54 Year
  Sex: Female
  Weight: 70.31 kg

DRUGS (5)
  1. SOUND BODY ALLERGY RELIEF (LORATADINE) [Suspect]
     Active Substance: LORATADINE
     Indication: Lacrimation increased
     Dosage: FREQUENCY : DAILY;?
     Route: 048
     Dates: start: 202007, end: 202307
  2. SYNTHROID [Concomitant]
     Active Substance: LEVOTHYROXINE SODIUM
  3. ESTRADIOL [Concomitant]
     Active Substance: ESTRADIOL
  4. PROGESTRONE [Concomitant]
  5. CHOLECALCIFEROL [Concomitant]
     Active Substance: CHOLECALCIFEROL

REACTIONS (1)
  - Nightmare [None]

NARRATIVE: CASE EVENT DATE: 20230720
